FAERS Safety Report 12325850 (Version 2)
Quarter: 2018Q4

REPORT INFORMATION
  Report Type: Spontaneous
  Country: US (occurrence: US)
  Receive Date: 20160503
  Receipt Date: 20181026
  Transmission Date: 20190204
  Serious: Yes (Other)
  Sender: FDA-Public Use
  Company Number: US-CIPLA LTD.-2016US04405

PATIENT

DRUGS (3)
  1. CETUXIMAB. [Concomitant]
     Active Substance: CETUXIMAB
     Indication: COLORECTAL CANCER METASTATIC
     Dosage: UNK, TWO-WEEKLY CYCLES (UNTIL CYCLE 34)
     Route: 065
     Dates: end: 201301
  2. RAMUCIRUMAB [Concomitant]
     Active Substance: RAMUCIRUMAB
     Indication: COLORECTAL CANCER METASTATIC
     Dosage: UNK, TWO-WEEKLY CYCLES (UNTIL CYCLE 34)
     Route: 065
     Dates: end: 201301
  3. IRINOTECAN [Suspect]
     Active Substance: IRINOTECAN
     Indication: COLORECTAL CANCER METASTATIC
     Dosage: UNK, TWO-WEEKLY CYCLES (DISCONTINUED DURING CYCLE 24)
     Route: 065

REACTIONS (1)
  - Neutropenia [Unknown]
